FAERS Safety Report 9122649 (Version 4)
Quarter: 2014Q2

REPORT INFORMATION
  Report Type: Spontaneous
  Country: US (occurrence: US)
  Receive Date: 20130115
  Receipt Date: 20140618
  Transmission Date: 20141212
  Serious: Yes (Hospitalization, Other)
  Sender: FDA-Public Use
  Company Number: US-009507513-1301USA005183

PATIENT
  Sex: Female
  Weight: 126.98 kg

DRUGS (1)
  1. NUVARING [Suspect]
     Indication: CONTRACEPTION
     Dosage: UNK
     Route: 067
     Dates: start: 20041202, end: 200903

REACTIONS (15)
  - Cholecystectomy [Unknown]
  - Cellulitis [Unknown]
  - Thrombosis [Unknown]
  - Phlebitis [Unknown]
  - Coagulopathy [Unknown]
  - Hypothyroidism [Unknown]
  - Gallbladder disorder [Unknown]
  - Urticaria [Unknown]
  - Rash [Unknown]
  - Cholecystitis [Unknown]
  - Carpal tunnel decompression [Unknown]
  - Muscle strain [Unknown]
  - Chest pain [Unknown]
  - Erythema [Unknown]
  - Flushing [Unknown]
